FAERS Safety Report 6382298-6 (Version None)
Quarter: 2009Q3

REPORT INFORMATION
  Report Type: 
  Country: None (occurrence: None)
  Receive Date: 20090925
  Receipt Date: 20090917
  Transmission Date: 20100115
  Serious: Yes (Disabling)
  Sender: FDA-Public Use
  Company Number: 2009009608

PATIENT
  Age: 35 Year
  Sex: Female
  Weight: 48.9885 kg

DRUGS (1)
  1. PROVIGIL [Suspect]
     Dosage: 50-150 MG, 1 OR 2 TIMES PER DAY, ORAL
     Route: 048
     Dates: start: 20020101, end: 20050101

REACTIONS (3)
  - BLADDER IRRITATION [None]
  - INCONTINENCE [None]
  - POLLAKIURIA [None]
